FAERS Safety Report 19919459 (Version 2)
Quarter: 2021Q4

REPORT INFORMATION
  Report Type: Report from Study
  Country: UY (occurrence: UY)
  Receive Date: 20211004
  Receipt Date: 20211124
  Transmission Date: 20220303
  Serious: Yes (Other)
  Sender: FDA-Public Use
  Company Number: UY-ABBVIE-21K-168-4102924-00

PATIENT
  Sex: Female

DRUGS (2)
  1. HUMIRA [Suspect]
     Active Substance: ADALIMUMAB
     Indication: Rheumatoid arthritis
     Route: 058
     Dates: start: 20141205
  2. PFIZER-BIONTECH COVID-19 VACCINE [Suspect]
     Active Substance: TOZINAMERAN
     Indication: COVID-19 immunisation
     Dosage: PFIZER
     Route: 030

REACTIONS (13)
  - Pulmonary mass [Not Recovered/Not Resolved]
  - Hypertension [Recovered/Resolved]
  - Mobility decreased [Not Recovered/Not Resolved]
  - Intentional product misuse [Unknown]
  - Rhinitis allergic [Not Recovered/Not Resolved]
  - Influenza [Recovered/Resolved]
  - Haemorrhoids [Not Recovered/Not Resolved]
  - Food intolerance [Not Recovered/Not Resolved]
  - Dairy intolerance [Not Recovered/Not Resolved]
  - Asthenia [Not Recovered/Not Resolved]
  - Gastrointestinal disorder [Not Recovered/Not Resolved]
  - Pneumonia bacterial [Recovered/Resolved]
  - Bacterial infection [Recovered/Resolved]

NARRATIVE: CASE EVENT DATE: 20140101
